FAERS Safety Report 6026139-5 (Version None)
Quarter: 2008Q4

REPORT INFORMATION
  Report Type: 
  Country: None (occurrence: None)
  Receive Date: 20081230
  Receipt Date: 20081222
  Transmission Date: 20090506
  Serious: Yes (Other)
  Sender: FDA-Public Use
  Company Number: 2008S1000571

PATIENT
  Age: 78 Year
  Sex: Female
  Weight: 74.8435 kg

DRUGS (9)
  1. OLUX E [Suspect]
     Indication: PSORIASIS
     Dosage: 0.05 PCT; BID; TOP
     Route: 061
     Dates: start: 20080901, end: 20081001
  2. NORVASC [Concomitant]
  3. LEVOTHYROXINE SODIUM [Concomitant]
  4. RANITIDINE [Concomitant]
  5. LIPITOR [Concomitant]
  6. ALPRAZOLAM [Concomitant]
  7. CELEXA [Concomitant]
  8. VALTREX [Concomitant]
  9. BONIVA [Concomitant]

REACTIONS (1)
  - SQUAMOUS CELL CARCINOMA [None]
